FAERS Safety Report 9525392 (Version 1)
Quarter: 2013Q1

REPORT INFORMATION
  Report Type: Spontaneous
  Country: US (occurrence: None)
  Receive Date: 20130305
  Receipt Date: 20130305
  Transmission Date: 20140127
  Serious: Yes (Other)
  Sender: FDA-Public Use
  Company Number: 163-21880-12022973

PATIENT
  Age: 72 Year
  Sex: Female

DRUGS (9)
  1. REVLIMID [Suspect]
     Indication: MYELODYSPLASTIC SYNDROME
     Dosage: 5 MG, EVERY OTHER DAY, PO
     Route: 048
     Dates: start: 201107, end: 201108
  2. SEPTRA (BACTRIM) [Concomitant]
  3. LEVOTHYROXINE (LEVOTHYROXINE) [Concomitant]
  4. LATANOPROST (LATANOPROST) [Concomitant]
  5. METFORMIN (METFORMIN) [Concomitant]
  6. MELOXICAM (MELOXICAM) [Concomitant]
  7. GLIPIZIDE (GLIPIZIDE) [Concomitant]
  8. LOSARTAN (LOSARTAN) [Concomitant]
  9. ZOCOR [Concomitant]

REACTIONS (3)
  - Pancytopenia [None]
  - Myelodysplastic syndrome [None]
  - Disease progression [None]
